FAERS Safety Report 19703154 (Version 1)
Quarter: 2021Q3

REPORT INFORMATION
  Report Type: Spontaneous
  Country: US (occurrence: US)
  Receive Date: 20210816
  Receipt Date: 20210816
  Transmission Date: 20211014
  Serious: Yes (Other)
  Sender: FDA-Public Use
  Company Number: US-PURACAP-US-2021EPCSPO00873

PATIENT
  Age: 77 Year
  Sex: Female

DRUGS (3)
  1. LISINOPRIL. [Concomitant]
     Active Substance: LISINOPRIL
     Indication: PRODUCT USED FOR UNKNOWN INDICATION
     Dosage: 2 CAPSULES
     Route: 065
     Dates: start: 20210716, end: 20210717
  2. ACETAMINOPHEN. [Concomitant]
     Active Substance: ACETAMINOPHEN
     Indication: MYOCARDIAL INFARCTION
     Dosage: 2 CAPSULES
     Route: 065
     Dates: start: 20210716, end: 20210716
  3. MUCINEX FAST?MAX COLD AND FLU [Suspect]
     Active Substance: ACETAMINOPHEN\DEXTROMETHORPHAN HYDROBROMIDE\GUAIFENESIN\PHENYLEPHRINE HYDROCHLORIDE
     Indication: SINUSITIS
     Dosage: 2 CAPSULES
     Route: 065
     Dates: start: 20210716

REACTIONS (1)
  - Labile blood pressure [Unknown]

NARRATIVE: CASE EVENT DATE: 2021
